FAERS Safety Report 16129374 (Version 1)
Quarter: 2019Q1

REPORT INFORMATION
  Report Type: Spontaneous
  Country: FR (occurrence: FR)
  Receive Date: 20190328
  Receipt Date: 20190328
  Transmission Date: 20190418
  Serious: Yes (Life-Threatening)
  Sender: FDA-Public Use
  Company Number: FR-EMD SERONO-E2B_90067014

PATIENT
  Age: 38 Year
  Sex: Female
  Weight: 65 kg

DRUGS (5)
  1. FYREMADEL [Suspect]
     Active Substance: GANIRELIX ACETATE
     Indication: CONTROLLED OVARIAN STIMULATION
     Dosage: 0.25 MG/0.5 ML
     Route: 058
     Dates: start: 201806
  2. OVITRELLE [Suspect]
     Active Substance: CHORIOGONADOTROPIN ALFA
     Indication: CONTROLLED OVARIAN STIMULATION
     Route: 058
     Dates: start: 201806
  3. PROGESTAN [Suspect]
     Active Substance: PROGESTERONE
     Indication: CONTROLLED OVARIAN STIMULATION
     Route: 067
     Dates: start: 201806, end: 201807
  4. OVALEAP [Suspect]
     Active Substance: FOLLITROPIN
     Indication: IN VITRO FERTILISATION
     Dosage: 900 UI/1,5 ML
     Route: 058
     Dates: start: 20180617, end: 20180625
  5. PROVAMES [Suspect]
     Active Substance: ESTRADIOL
     Indication: CONTROLLED OVARIAN STIMULATION
     Route: 048
     Dates: start: 201806

REACTIONS (2)
  - Epilepsy [Recovered/Resolved]
  - Meningioma [Recovered/Resolved]

NARRATIVE: CASE EVENT DATE: 20181108
